FAERS Safety Report 10164054 (Version 1)
Quarter: 2014Q2

REPORT INFORMATION
  Report Type: Spontaneous
  Country: US (occurrence: US)
  Receive Date: 20140510
  Receipt Date: 20140510
  Transmission Date: 20141212
  Serious: No
  Sender: FDA-Public Use
  Company Number: US-BRISTOL-MYERS SQUIBB COMPANY-19865393

PATIENT
  Age: 56 Year
  Sex: Female
  Weight: 174.6 kg

DRUGS (1)
  1. BYETTA PEN DISPOSABLE [Suspect]
     Indication: TYPE 2 DIABETES MELLITUS
     Dosage: INCREASED TO 10MCG
     Route: 058

REACTIONS (4)
  - Diarrhoea [Not Recovered/Not Resolved]
  - Nausea [Unknown]
  - Headache [Unknown]
  - Glycosylated haemoglobin increased [Unknown]
